FAERS Safety Report 21085302 (Version 2)
Quarter: 2022Q3

REPORT INFORMATION
  Report Type: Spontaneous
  Country: JP (occurrence: JP)
  Receive Date: 20220714
  Receipt Date: 20220729
  Transmission Date: 20221027
  Serious: Yes (Other)
  Sender: FDA-Public Use
  Company Number: JP-MTPC-MTPC2022-0018565

PATIENT
  Age: 65 Year
  Sex: Male

DRUGS (8)
  1. CANAGLIFLOZIN [Suspect]
     Active Substance: CANAGLIFLOZIN
     Indication: Type 2 diabetes mellitus
     Dosage: 100 MILLIGRAM, QD
     Route: 048
  2. VADADUSTAT [Suspect]
     Active Substance: VADADUSTAT
     Indication: Product used for unknown indication
     Dosage: 300 MILLIGRAM, QD
     Route: 048
  3. ASPIRIN [Concomitant]
     Active Substance: ASPIRIN
     Route: 065
  4. CARVEDILOL [Concomitant]
     Active Substance: CARVEDILOL
     Route: 065
  5. SACUBITRIL\VALSARTAN [Concomitant]
     Active Substance: SACUBITRIL\VALSARTAN
     Route: 065
  6. NIFEDIPINE [Concomitant]
     Active Substance: NIFEDIPINE
     Route: 065
  7. ATORVASTATIN [Concomitant]
     Active Substance: ATORVASTATIN
     Route: 065
  8. SODIUM BICARBONATE [Concomitant]
     Active Substance: SODIUM BICARBONATE
     Route: 065

REACTIONS (3)
  - Glomerular filtration rate decreased [Unknown]
  - Tonsillectomy [Unknown]
  - Off label use [Unknown]

NARRATIVE: CASE EVENT DATE: 20170215
